FAERS Safety Report 7680464-0 (Version None)
Quarter: 2011Q3

REPORT INFORMATION
  Report Type: 
  Country: None (occurrence: None)
  Receive Date: 20110812
  Receipt Date: 20110809
  Transmission Date: 20111222
  Serious: Yes (Other)
  Sender: FDA-Public Use
  Company Number: US-PFIZER INC-2011139776

PATIENT
  Sex: Male

DRUGS (3)
  1. GEODON [Suspect]
     Indication: BIPOLAR DISORDER
     Dosage: 160 MG AFTER SUPPER
  2. SEROQUEL [Concomitant]
     Indication: BIPOLAR DISORDER
     Dosage: 400 MG 2 AT BEDTIME
     Dates: start: 20080101
  3. LITHIUM [Suspect]
     Indication: BIPOLAR DISORDER
     Dosage: 450 MG 2 AT BEDTIME
     Dates: start: 20080101

REACTIONS (6)
  - TREATMENT NONCOMPLIANCE [None]
  - HEAT EXHAUSTION [None]
  - ANTIPSYCHOTIC DRUG LEVEL BELOW THERAPEUTIC [None]
  - MANIA [None]
  - AGGRESSION [None]
  - IRRITABILITY [None]
